FAERS Safety Report 16660028 (Version 5)
Quarter: 2021Q1

REPORT INFORMATION
  Report Type: Report from Study
  Country: BR (occurrence: BR)
  Receive Date: 20190802
  Receipt Date: 20210220
  Transmission Date: 20210419
  Serious: Yes (Other)
  Sender: FDA-Public Use
  Company Number: PHHY2019BR178790

PATIENT
  Age: 50 Year
  Sex: Female

DRUGS (3)
  1. COSENTYX [Suspect]
     Active Substance: SECUKINUMAB
     Dosage: UNK UNK, UNKNOWN
     Route: 058
  2. COSENTYX [Suspect]
     Active Substance: SECUKINUMAB
     Indication: PSORIASIS
     Dosage: 300 MG, UNKNOWN
     Route: 058
     Dates: start: 20190603
  3. COSENTYX [Suspect]
     Active Substance: SECUKINUMAB
     Dosage: UNK (LAST DOSE)
     Route: 058
     Dates: start: 202010

REACTIONS (6)
  - Malaise [Recovered/Resolved]
  - Product dose omission issue [Unknown]
  - H1N1 influenza [Recovered/Resolved]
  - Rhinitis [Recovered/Resolved]
  - Needle issue [Unknown]
  - Anxiety [Unknown]

NARRATIVE: CASE EVENT DATE: 202010
